FAERS Safety Report 12707046 (Version 1)
Quarter: 2016Q3

REPORT INFORMATION
  Report Type: Report from Study
  Country: JP (occurrence: JP)
  Receive Date: 20160901
  Receipt Date: 20160901
  Transmission Date: 20161109
  Serious: Yes (Other)
  Sender: FDA-Public Use
  Company Number: PHJP2015JP015328

PATIENT
  Age: 7 Year
  Sex: Female
  Weight: 17 kg

DRUGS (7)
  1. TOPINA [Suspect]
     Active Substance: TOPIRAMATE
     Indication: EPILEPSY
     Dosage: 20 MG, UNK
     Route: 048
     Dates: start: 20151022
  2. INOVELON [Suspect]
     Active Substance: RUFINAMIDE
     Indication: EPILEPSY
     Dosage: 600 MG, UNK
     Route: 048
     Dates: end: 20151021
  3. AFINITOR [Suspect]
     Active Substance: EVEROLIMUS
     Indication: ASTROCYTOMA, LOW GRADE
     Dosage: 2 MG, QD
     Route: 048
     Dates: start: 20150226
  4. SELENICA-R [Suspect]
     Active Substance: VALPROATE SODIUM
     Indication: EPILEPSY
     Dosage: 600 MG, UNK
     Route: 048
  5. TEGRETOL [Suspect]
     Active Substance: CARBAMAZEPINE
     Indication: EPILEPSY
     Dosage: 250 MG, UNK
     Route: 048
  6. LAMICTAL [Suspect]
     Active Substance: LAMOTRIGINE
     Indication: EPILEPSY
     Dosage: 150 MG, UNK
     Route: 048
  7. RIVOTRIL [Suspect]
     Active Substance: CLONAZEPAM
     Indication: EPILEPSY
     Dosage: 1.1 MG, UNK
     Route: 048

REACTIONS (3)
  - Gamma-glutamyltransferase increased [Unknown]
  - White blood cell count increased [Unknown]
  - Stomatitis [Recovering/Resolving]

NARRATIVE: CASE EVENT DATE: 20150326
